FAERS Safety Report 19666068 (Version 1)
Quarter: 2021Q3

REPORT INFORMATION
  Report Type: Other
  Country: FR (occurrence: FR)
  Receive Date: 20210806
  Receipt Date: 20210806
  Transmission Date: 20211014
  Serious: Yes (Hospitalization)
  Sender: FDA-Public Use
  Company Number: FR-CELLTRION INC.-2021FR010271

PATIENT

DRUGS (16)
  1. ISOPHANE INSULIN [Concomitant]
     Active Substance: INSULIN NOS
     Dosage: 14 IU
  2. HUMALOG [Concomitant]
     Active Substance: INSULIN LISPRO
  3. ZOPICLONE [Concomitant]
     Active Substance: ZOPICLONE
     Indication: INSOMNIA
     Dosage: 3.75 MG
  4. PARACETAMOL [Concomitant]
     Active Substance: ACETAMINOPHEN
  5. BACTRIM [Concomitant]
     Active Substance: SULFAMETHOXAZOLE\TRIMETHOPRIM
     Dosage: 800 MG
  6. IVERMECTIN. [Concomitant]
     Active Substance: IVERMECTIN
  7. TRAMADOL. [Concomitant]
     Active Substance: TRAMADOL
  8. METHYLPREDNISOLONE. [Concomitant]
     Active Substance: METHYLPREDNISOLONE
     Dosage: 40 MG
     Dates: start: 20210415
  9. CORTANCYL [Concomitant]
     Active Substance: PREDNISONE
     Dosage: 30 MG
  10. RITUXIMAB (UNKNOWN) [Suspect]
     Active Substance: RITUXIMAB
     Indication: EPSTEIN-BARR VIRUS INFECTION REACTIVATION
     Dosage: 375 MG/M2, EVERY 1 WEEK
     Route: 041
     Dates: start: 20210322
  11. METHYLPREDNISOLONE. [Concomitant]
     Active Substance: METHYLPREDNISOLONE
     Dosage: 240 MG
     Dates: start: 20210317
  12. FOLINIC ACID [Concomitant]
     Active Substance: LEUCOVORIN
  13. MACROGOL [Concomitant]
     Active Substance: POLYETHYLENE GLYCOLS
  14. VITAMIN C [Concomitant]
     Active Substance: ASCORBIC ACID
     Dosage: 500 MG
  15. METHYLPREDNISOLONE. [Concomitant]
     Active Substance: METHYLPREDNISOLONE
     Dosage: 20 MG
  16. FUROSEMIDE. [Concomitant]
     Active Substance: FUROSEMIDE
     Dosage: 20 MG, DAILY

REACTIONS (2)
  - COVID-19 [Recovered/Resolved]
  - Off label use [Unknown]

NARRATIVE: CASE EVENT DATE: 20210414
